FAERS Safety Report 6062046-X (Version None)
Quarter: 2009Q1

REPORT INFORMATION
  Report Type: 
  Country: None (occurrence: None)
  Receive Date: 20090202
  Receipt Date: 20090121
  Transmission Date: 20090719
  Serious: Yes (Hospitalization)
  Sender: FDA-Public Use
  Company Number: FR-GILEAD-2008-0016644

PATIENT
  Sex: Male

DRUGS (8)
  1. TRUVADA [Suspect]
     Indication: HIV INFECTION
     Route: 048
     Dates: start: 20070110
  2. REYATAZ [Suspect]
     Indication: HIV INFECTION
     Route: 048
     Dates: start: 20070110
  3. NORVIR [Suspect]
     Indication: HIV INFECTION
     Route: 048
     Dates: start: 20070110
  4. SEROPRAM [Concomitant]
  5. XANAX [Concomitant]
  6. DOLIPRANE [Concomitant]
  7. DUSPATATLIN [Concomitant]
  8. KETODERM [Concomitant]

REACTIONS (1)
  - MYOCARDIAL INFARCTION [None]
